FAERS Safety Report 12530962 (Version 1)
Quarter: 2016Q3

REPORT INFORMATION
  Report Type: Spontaneous
  Country: US (occurrence: None)
  Receive Date: 20160705
  Receipt Date: 20160705
  Transmission Date: 20161109
  Serious: Yes (Other)
  Sender: FDA-Public Use
  Company Number: None

PATIENT
  Age: 57 Year
  Sex: Female
  Weight: 108.41 kg

DRUGS (5)
  1. HYDROCHLOROTHIAZIDE. [Concomitant]
     Active Substance: HYDROCHLOROTHIAZIDE
  2. IMIQUIMOD 5% CREAM PACKET, .25 G PERRIGO [Suspect]
     Active Substance: IMIQUIMOD
     Indication: BASAL CELL CARCINOMA
     Dosage: IMIQUIMOD 5% CREAM PACKET?TOPICAL - 5 TIMES PER WEEK / 4 WEEKS
     Route: 061
     Dates: start: 20160623, end: 20160623
  3. ATENOLOL. [Concomitant]
     Active Substance: ATENOLOL
  4. IBUPROFEN. [Concomitant]
     Active Substance: IBUPROFEN
  5. BUPROPION. [Concomitant]
     Active Substance: BUPROPION

REACTIONS (5)
  - Blister [None]
  - Pain in extremity [None]
  - Chemical injury [None]
  - Skin exfoliation [None]
  - Burning sensation [None]

NARRATIVE: CASE EVENT DATE: 20160623
